FAERS Safety Report 5749314-3 (Version None)
Quarter: 2008Q2

REPORT INFORMATION
  Report Type: 
  Country: None (occurrence: None)
  Receive Date: 20080522
  Receipt Date: 20080522
  Transmission Date: 20081010
  Serious: Yes (Other)
  Sender: FDA-Public Use
  Company Number: None

PATIENT
  Age: 39 Year
  Sex: Female
  Weight: 56.246 kg

DRUGS (1)
  1. PRO HEALTH RINSE CREST [Suspect]
     Indication: TOOTH DISCOLOURATION
     Dosage: 2 TABLESPOON TWICW DAILY BUCCAL ABOUT 2 1/2 WEEKS
     Route: 002
     Dates: start: 20080424, end: 20080512

REACTIONS (1)
  - TOOTH DISCOLOURATION [None]
